FAERS Safety Report 20709171 (Version 2)
Quarter: 2022Q2

REPORT INFORMATION
  Report Type: Spontaneous
  Country: JP (occurrence: JP)
  Receive Date: 20220414
  Receipt Date: 20220530
  Transmission Date: 20220720
  Serious: Yes (Hospitalization)
  Sender: FDA-Public Use
  Company Number: JP-OTSUKA-2022_022994

PATIENT
  Age: 4 Decade
  Sex: Male

DRUGS (1)
  1. ICLUSIG [Suspect]
     Active Substance: PONATINIB
     Indication: Product used for unknown indication
     Dosage: UNK
     Route: 048

REACTIONS (1)
  - Hospitalisation [Unknown]
